FAERS Safety Report 9665400 (Version 1)
Quarter: 2013Q4

REPORT INFORMATION
  Report Type: Spontaneous
  Country: US (occurrence: US)
  Receive Date: 20131104
  Receipt Date: 20131104
  Transmission Date: 20140711
  Serious: No
  Sender: FDA-Public Use
  Company Number: US-009507513-1310USA002216

PATIENT
  Age: 39 Year
  Sex: Female
  Weight: 92.97 kg

DRUGS (1)
  1. NEXPLANON [Suspect]
     Indication: CONTRACEPTION
     Dosage: 1 ROD UP TO 3 YEARS
     Route: 059
     Dates: start: 20130925

REACTIONS (5)
  - Discomfort [Unknown]
  - Device difficult to use [Unknown]
  - Product quality issue [Unknown]
  - Device expulsion [Unknown]
  - Device deployment issue [Unknown]
